FAERS Safety Report 19236741 (Version 1)
Quarter: 2021Q2

REPORT INFORMATION
  Report Type: Spontaneous
  Country: US (occurrence: US)
  Receive Date: 20210510
  Receipt Date: 20210510
  Transmission Date: 20210717
  Serious: Yes (Other)
  Sender: FDA-Public Use
  Company Number: US-AUROBINDO-AUR-APL-2020-024918

PATIENT
  Age: 18 Month
  Sex: Female

DRUGS (1)
  1. RISPERIDONE 1MG/ML [Suspect]
     Active Substance: RISPERIDONE
     Indication: AUTISM SPECTRUM DISORDER
     Dosage: 0.1 MILLILITER
     Route: 065

REACTIONS (2)
  - Infrequent bowel movements [Unknown]
  - Off label use [Unknown]
